FAERS Safety Report 6342126-1 (Version None)
Quarter: 2009Q3

REPORT INFORMATION
  Report Type: 
  Country: None (occurrence: None)
  Receive Date: 20090903
  Receipt Date: 20090903
  Transmission Date: 20100115
  Serious: No
  Sender: FDA-Public Use
  Company Number: None

PATIENT
  Age: 50 Year
  Sex: Female

DRUGS (1)
  1. BUPROPION HYDROCHLORIDE [Suspect]
     Dosage: 300MG QD PO
     Route: 048
     Dates: start: 20090806, end: 20090902

REACTIONS (3)
  - MUSCLE TWITCHING [None]
  - PRURITUS [None]
  - WEIGHT INCREASED [None]
